FAERS Safety Report 4414666-3 (Version None)
Quarter: 2004Q3

REPORT INFORMATION
  Report Type: 
  Country: None (occurrence: None)
  Receive Date: 20040729
  Receipt Date: 20040716
  Transmission Date: 20050211
  Serious: Yes (Hospitalization)
  Sender: FDA-Public Use
  Company Number: US-JNJFOC-20040203592

PATIENT
  Age: 59 Year
  Sex: Female

DRUGS (5)
  1. DURAGESIC [Suspect]
     Indication: PAIN
     Dosage: 75 UG/HR, 1 IN 48 HOUR, TRANSDERMAL
     Route: 062
     Dates: start: 20010101
  2. NUBAIN [Suspect]
     Indication: POSTOPERATIVE ANALGESIA
     Dosage: ONE DOSE ONLY
  3. PREDNISONE (TABLETS) PREDNISONE [Concomitant]
  4. METHOTREXATE (TABLETS) (METHOTREXATE) [Concomitant]
  5. MYOCALCIN (CALCITOININ, SALMON) SPRAY [Concomitant]

REACTIONS (7)
  - ABNORMAL BEHAVIOUR [None]
  - ABSCESS [None]
  - APPENDICITIS PERFORATED [None]
  - CONVULSION [None]
  - PAIN [None]
  - POST PROCEDURAL PAIN [None]
  - SCREAMING [None]
